FAERS Safety Report 5832331-2 (Version None)
Quarter: 2008Q3

REPORT INFORMATION
  Report Type: 
  Country: None (occurrence: None)
  Receive Date: 20080804
  Receipt Date: 20080724
  Transmission Date: 20090109
  Serious: Yes (Other)
  Sender: FDA-Public Use
  Company Number: B0530889A

PATIENT
  Age: 75 Year
  Sex: Male

DRUGS (1)
  1. ARIXTRA [Suspect]
     Indication: PROPHYLAXIS
     Dosage: 7.5MG PER DAY
     Route: 058
     Dates: start: 20080719

REACTIONS (3)
  - DRUG ADMINISTRATION ERROR [None]
  - POST PROCEDURAL HAEMORRHAGE [None]
  - POSTOPERATIVE THROMBOSIS [None]
